FAERS Safety Report 11754872 (Version 1)
Quarter: 2015Q4

REPORT INFORMATION
  Report Type: Report from Study
  Country: US (occurrence: US)
  Receive Date: 20151119
  Receipt Date: 20151119
  Transmission Date: 20160304
  Serious: Yes (Other)
  Sender: FDA-Public Use
  Company Number: US-BAYER-2015-401380

PATIENT
  Age: 54 Year
  Sex: Male

DRUGS (1)
  1. STIVARGA [Suspect]
     Active Substance: REGORAFENIB
     Indication: COLORECTAL CANCER METASTATIC
     Dosage: 80 MG, QD(7 DAYS ON AND 7 DAYS OFF)
     Route: 048
     Dates: start: 20150803

REACTIONS (8)
  - Arthralgia [None]
  - Hypotension [None]
  - Back pain [None]
  - Dysphonia [None]
  - Fatigue [None]
  - Catheter placement [None]
  - Drug prescribing error [None]
  - Skin exfoliation [None]

NARRATIVE: CASE EVENT DATE: 201508
